FAERS Safety Report 17135365 (Version 6)
Quarter: 2021Q1

REPORT INFORMATION
  Report Type: Spontaneous
  Country: US (occurrence: US)
  Receive Date: 20191210
  Receipt Date: 20210318
  Transmission Date: 20210419
  Serious: No
  Sender: FDA-Public Use
  Company Number: US-PFIZER INC-2019339298

PATIENT
  Age: 72 Year
  Sex: Female

DRUGS (1)
  1. LYRICA [Suspect]
     Active Substance: PREGABALIN
     Dosage: 225 MG, 1X/DAY [EVERY NIGHT AT BEDTIME, QHS]
     Route: 048

REACTIONS (7)
  - Pain [Unknown]
  - Pain in extremity [Unknown]
  - Hypoacusis [Unknown]
  - Bronchitis [Unknown]
  - Road traffic accident [Unknown]
  - Malaise [Unknown]
  - Feeling abnormal [Unknown]
